FAERS Safety Report 10230000 (Version 3)
Quarter: 2014Q3

REPORT INFORMATION
  Report Type: Report from Study
  Country: NL (occurrence: NL)
  Receive Date: 20140611
  Receipt Date: 20140905
  Transmission Date: 20150326
  Serious: Yes (Other)
  Sender: FDA-Public Use
  Company Number: NL-CELGENEUS-114-21880-14055395

PATIENT
  Age: 85 Year
  Sex: Male
  Weight: 88 kg

DRUGS (4)
  1. REVLIMID [Suspect]
     Active Substance: LENALIDOMIDE
     Indication: PLASMA CELL MYELOMA
     Route: 048
     Dates: start: 20120402, end: 20140324
  2. ACETYLSALICYLZUUR [Concomitant]
     Indication: PROPHYLAXIS
     Route: 048
     Dates: start: 20140402
  3. PREDNISONE. [Suspect]
     Active Substance: PREDNISONE
     Indication: PLASMA CELL MYELOMA
     Route: 065
     Dates: start: 20120402, end: 20121116
  4. MELPHALAN [Suspect]
     Active Substance: MELPHALAN
     Indication: PLASMA CELL MYELOMA
     Route: 065
     Dates: start: 20120402, end: 20121116

REACTIONS (1)
  - Acute myeloid leukaemia [Not Recovered/Not Resolved]

NARRATIVE: CASE EVENT DATE: 20140519
